FAERS Safety Report 7757452-9 (Version None)
Quarter: 2011Q3

REPORT INFORMATION
  Report Type: 
  Country: None (occurrence: None)
  Receive Date: 20110916
  Receipt Date: 20110909
  Transmission Date: 20111222
  Serious: Yes (Death, Other)
  Sender: FDA-Public Use
  Company Number: GB-GENZYME-CAMP-1001894

PATIENT
  Age: 41 Year
  Sex: Female

DRUGS (5)
  1. CAMPATH [Suspect]
     Indication: RENAL TRANSPLANT
     Dosage: 30 MG, UNK
     Route: 065
     Dates: start: 20060101
  2. METHYLPREDNISOLONE [Suspect]
     Indication: RENAL TRANSPLANT
     Dosage: UNK
     Route: 065
     Dates: start: 20060101
  3. TACROLIMUS [Suspect]
     Indication: IMMUNOSUPPRESSANT DRUG THERAPY
     Dosage: UNK
     Route: 065
  4. CAMPATH [Suspect]
     Indication: RENAL FAILURE CHRONIC
  5. METHYLPREDNISOLONE [Suspect]
     Indication: RENAL FAILURE CHRONIC

REACTIONS (5)
  - BONE MARROW OEDEMA [None]
  - BONE METABOLISM DISORDER [None]
  - METASTASES TO LUNG [None]
  - ARTERIOVENOUS FISTULA [None]
  - ANGIOSARCOMA [None]
